FAERS Safety Report 8165829-5 (Version None)
Quarter: 2012Q1

REPORT INFORMATION
  Report Type: 
  Country: None (occurrence: None)
  Receive Date: 20120103
  Receipt Date: 20111019
  Transmission Date: 20120608
  Serious: No
  Sender: FDA-Public Use
  Company Number: AE-2011-002507

PATIENT
  Age: 51 Year
  Sex: Female
  Weight: 64.8644 kg

DRUGS (4)
  1. INCIVEK [Suspect]
     Dosage: (3 IN 12 HR),ORAL
     Route: 048
     Dates: start: 20111019
  2. ACETAMINOPHEN [Concomitant]
  3. PEGASYS [Concomitant]
  4. RIBAVIRIN [Concomitant]

REACTIONS (4)
  - DRUG ADMINISTRATION ERROR [None]
  - CHILLS [None]
  - ABDOMINAL DISCOMFORT [None]
  - PYREXIA [None]
